FAERS Safety Report 7378590-9 (Version None)
Quarter: 2011Q1

REPORT INFORMATION
  Report Type: 
  Country: None (occurrence: None)
  Receive Date: 20110317
  Receipt Date: 20110302
  Transmission Date: 20110831
  Serious: Yes (Other)
  Sender: FDA-Public Use
  Company Number: 026630

PATIENT
  Sex: Female
  Weight: 65 kg

DRUGS (2)
  1. IRON [Concomitant]
  2. CIMZIA [Suspect]
     Indication: CROHN'S DISEASE
     Dosage: SUBCUTANEOUS
     Route: 058

REACTIONS (6)
  - PREGNANCY [None]
  - CAESAREAN SECTION [None]
  - OFF LABEL USE [None]
  - SUPPRESSED LACTATION [None]
  - DRUG EXPOSURE DURING PREGNANCY [None]
  - SERUM FERRITIN DECREASED [None]
